FAERS Safety Report 6261374-2 (Version None)
Quarter: 2009Q3

REPORT INFORMATION
  Report Type: 
  Country: None (occurrence: None)
  Receive Date: 20090709
  Receipt Date: 20090629
  Transmission Date: 20100115
  Serious: Yes (Hospitalization)
  Sender: FDA-Public Use
  Company Number: FR-PFIZER INC-2009233145

PATIENT
  Age: 65 Year

DRUGS (1)
  1. CAMPTOSAR [Suspect]
     Dosage: 300 MG, CYCLIC
     Route: 042
     Dates: start: 20090420, end: 20090420

REACTIONS (2)
  - FACIAL PALSY [None]
  - PSYCHOMOTOR SKILLS IMPAIRED [None]
